FAERS Safety Report 10416934 (Version 3)
Quarter: 2015Q1

REPORT INFORMATION
  Report Type: Report from Study
  Country: US (occurrence: US)
  Receive Date: 20140828
  Receipt Date: 20150320
  Transmission Date: 20150720
  Serious: Yes (Hospitalization)
  Sender: FDA-Public Use
  Company Number: US-TARO-2014TAR00270

PATIENT
  Age: 75 Year
  Sex: Male
  Weight: 90.7 kg

DRUGS (17)
  1. OMEPRAZOLE DELAYED RELEASE CAPSULE [Concomitant]
     Dosage: 20 MG, 1X/DAY
     Route: 048
  2. DIPHENHYDRAMINE [Concomitant]
     Active Substance: DIPHENHYDRAMINE
     Dosage: 50 MG, 1X/DAY
     Route: 048
  3. ALDARA [Suspect]
     Active Substance: IMIQUIMOD
     Indication: ACTINIC KERATOSIS
     Dosage: 1 APPLICATION, 2X/WEEK
     Route: 061
     Dates: start: 20140225, end: 20140614
  4. GABAPENTIN. [Concomitant]
     Active Substance: GABAPENTIN
     Dosage: 600 MG, 2X/DAY
     Route: 048
  5. DIGOXIN. [Concomitant]
     Active Substance: DIGOXIN
     Dosage: 125 ?G, 1X/DAY
     Route: 048
  6. TRAMADOL [Concomitant]
     Active Substance: TRAMADOL
     Dosage: 50 MG, 4X/DAY
     Route: 048
  7. CYANOCOBALAMIN. [Concomitant]
     Active Substance: CYANOCOBALAMIN
     Dosage: 1000 ?G, 2X/MONTH
     Route: 030
  8. CARVEDILOL. [Concomitant]
     Active Substance: CARVEDILOL
     Dosage: 25 MG, 2X/DAY
     Route: 048
  9. NAPROXEN. [Concomitant]
     Active Substance: NAPROXEN
     Indication: PAIN
     Dosage: 375 MG, AS NEEDED
     Route: 048
  10. WARFARIN [Concomitant]
     Active Substance: WARFARIN
     Dosage: 2.5 MG, 4X/WEEK
     Route: 048
  11. GABAPENTIN. [Concomitant]
     Active Substance: GABAPENTIN
     Dosage: 300 MG, 1X/DAY
     Route: 048
  12. WARFARIN [Concomitant]
     Active Substance: WARFARIN
     Dosage: 5 MG, 3X/WEEK
     Route: 048
  13. FUROSEMIDE. [Concomitant]
     Active Substance: FUROSEMIDE
     Dosage: 20 MG, 1X/DAY
     Route: 048
  14. RANITIDINE [Concomitant]
     Active Substance: RANITIDINE\RANITIDINE HYDROCHLORIDE
     Dosage: 150 MG, 1X/DAY
     Route: 048
  15. EPLEREONONE [Concomitant]
     Dosage: 25 MG, 1X/DAY
     Route: 048
  16. VITAMIN B-1 [Concomitant]
     Dosage: 250 MG, 1X/DAY
     Route: 048
  17. PSYLLIUM (KONSYL) ORAL POWDER [Concomitant]
     Dosage: 5 ML, 1X/DAY
     Route: 048

REACTIONS (3)
  - Pneumonia [None]
  - Haematuria [None]
  - Cardiac pacemaker insertion [Recovered/Resolved]

NARRATIVE: CASE EVENT DATE: 20140717
